FAERS Safety Report 13562109 (Version 1)
Quarter: 2017Q2

REPORT INFORMATION
  Report Type: Report from Study
  Country: None (occurrence: US)
  Receive Date: 20170519
  Receipt Date: 20170519
  Transmission Date: 20170830
  Serious: Yes (Hospitalization, Other)
  Sender: FDA-Public Use
  Company Number: US-ABBVIE-17K-163-1975508-00

PATIENT
  Sex: Female

DRUGS (2)
  1. HUMIRA [Suspect]
     Active Substance: ADALIMUMAB
     Route: 058
     Dates: start: 201703
  2. HUMIRA [Suspect]
     Active Substance: ADALIMUMAB
     Indication: PRODUCT USED FOR UNKNOWN INDICATION
     Route: 058
     Dates: end: 201701

REACTIONS (7)
  - Abdominal pain upper [Recovered/Resolved with Sequelae]
  - Vocal cord disorder [Not Recovered/Not Resolved]
  - Pneumonia [Recovered/Resolved with Sequelae]
  - Road traffic accident [Recovered/Resolved]
  - Immunodeficiency [Recovered/Resolved]
  - Post-traumatic pain [Recovered/Resolved]
  - Gastrooesophageal reflux disease [Not Recovered/Not Resolved]

NARRATIVE: CASE EVENT DATE: 2017
